FAERS Safety Report 13218505 (Version 1)
Quarter: 2017Q1

REPORT INFORMATION
  Report Type: Other
  Country: US (occurrence: US)
  Receive Date: 20170210
  Receipt Date: 20170210
  Transmission Date: 20170428
  Serious: No
  Sender: FDA-Public Use
  Company Number: US-ACORDA-ACO_122609_2016

PATIENT
  Sex: Female
  Weight: 72.11 kg

DRUGS (1)
  1. AMPYRA [Suspect]
     Active Substance: DALFAMPRIDINE
     Indication: GAIT DISTURBANCE
     Dosage: 10 MG, BID
     Route: 048
     Dates: start: 2016, end: 20160322

REACTIONS (6)
  - Drug ineffective [Unknown]
  - Back pain [Recovered/Resolved]
  - Headache [Recovered/Resolved]
  - Insomnia [Not Recovered/Not Resolved]
  - Drug dose omission [Unknown]
  - Adverse drug reaction [Unknown]
